FAERS Safety Report 9767400 (Version 1)
Quarter: 2013Q4

REPORT INFORMATION
  Report Type: Spontaneous
  Country: US (occurrence: US)
  Receive Date: 20131217
  Receipt Date: 20131217
  Transmission Date: 20140711
  Serious: No
  Sender: FDA-Public Use
  Company Number: US-009507513-1310USA007025

PATIENT
  Age: 65 Year
  Sex: Female

DRUGS (2)
  1. AZASITE [Suspect]
     Indication: EYE INFECTION
     Dosage: 2 GTT, BID
     Route: 031
     Dates: start: 20131008, end: 20131011
  2. SYNTHROID [Concomitant]

REACTIONS (5)
  - Eye discharge [Recovering/Resolving]
  - Ocular hyperaemia [Recovering/Resolving]
  - Eye pain [Recovering/Resolving]
  - Vision blurred [Recovering/Resolving]
  - Eye irritation [Recovering/Resolving]
